FAERS Safety Report 5374594-6 (Version None)
Quarter: 2007Q2

REPORT INFORMATION
  Report Type: 
  Country: None (occurrence: None)
  Receive Date: 20070618
  Receipt Date: 20060621
  Transmission Date: 20071010
  Serious: Yes (Hospitalization)
  Sender: FDA-Public Use
  Company Number: 2712

PATIENT
  Age: 43 Year
  Sex: Female

DRUGS (3)
  1. METHIMAZOLE [Suspect]
     Indication: HYPERTHYROIDISM
     Dosage: 30MG (10 MG, 3 IN 1 D);
     Dates: start: 20011104, end: 20011208
  2. PROPRANOLOL [Concomitant]
  3. AMLODIPINE [Concomitant]

REACTIONS (1)
  - JAUNDICE CHOLESTATIC [None]
